FAERS Safety Report 6152084-0 (Version None)
Quarter: 2009Q2

REPORT INFORMATION
  Report Type: 
  Country: None (occurrence: None)
  Receive Date: 20090409
  Receipt Date: 20090409
  Transmission Date: 20091009
  Serious: Yes (Life-Threatening)
  Sender: FDA-Public Use
  Company Number: None

PATIENT
  Age: 50 Year
  Sex: Female
  Weight: 77.1115 kg

DRUGS (1)
  1. TRIAZ [Suspect]
     Indication: PAIN

REACTIONS (2)
  - ACCIDENTAL EXPOSURE [None]
  - TACHYCARDIA [None]
